FAERS Safety Report 7621009-0 (Version None)
Quarter: 2011Q3

REPORT INFORMATION
  Report Type: 
  Country: None (occurrence: None)
  Receive Date: 20110719
  Receipt Date: 20100924
  Transmission Date: 20111222
  Serious: No
  Sender: FDA-Public Use
  Company Number: US-KINGPHARMUSA00001-K201001214

PATIENT
  Sex: Male
  Weight: 106.58 kg

DRUGS (3)
  1. LEVOXYL [Suspect]
     Dosage: 100 MCG, QD
     Dates: start: 20100101
  2. LEVOXYL [Suspect]
     Indication: HYPOTHYROIDISM
     Dosage: 25 MCG, QAM
     Route: 048
     Dates: start: 19981201
  3. LEVOXYL [Suspect]
     Dosage: 88 MCG, QD
     Dates: end: 20100101

REACTIONS (3)
  - BLOOD THYROID STIMULATING HORMONE DECREASED [None]
  - THYROID FUNCTION TEST ABNORMAL [None]
  - FATIGUE [None]
